FAERS Safety Report 7323842-1 (Version None)
Quarter: 2011Q1

REPORT INFORMATION
  Report Type: 
  Country: None (occurrence: None)
  Receive Date: 20110301
  Receipt Date: 20110223
  Transmission Date: 20110831
  Serious: Yes (Life-Threatening)
  Sender: FDA-Public Use
  Company Number: A0913861A

PATIENT
  Sex: Male

DRUGS (3)
  1. QVAR 40 [Concomitant]
     Dosage: 100MCG UNKNOWN
     Route: 065
  2. VENTOLIN [Concomitant]
     Route: 065
  3. CEFTIN [Suspect]
     Indication: INFECTION
     Dosage: 375MG PER DAY
     Route: 065
     Dates: start: 20110215

REACTIONS (4)
  - DYSPNOEA [None]
  - LIP SWELLING [None]
  - PHARYNGEAL OEDEMA [None]
  - ANAPHYLACTIC REACTION [None]
